FAERS Safety Report 20056699 (Version 3)
Quarter: 2022Q3

REPORT INFORMATION
  Report Type: Spontaneous
  Country: US (occurrence: US)
  Receive Date: 20211111
  Receipt Date: 20220816
  Transmission Date: 20221027
  Serious: No
  Sender: FDA-Public Use
  Company Number: US-ADC THERAPEUTICS-ADC-2021-000145

PATIENT
  Age: 89 Year
  Sex: Female

DRUGS (1)
  1. ZYNLONTA [Suspect]
     Active Substance: LONCASTUXIMAB TESIRINE-LPYL
     Indication: Diffuse large B-cell lymphoma
     Dosage: UNK
     Route: 042

REACTIONS (6)
  - Rash maculo-papular [Recovering/Resolving]
  - Rash vesicular [Recovered/Resolved]
  - Dermatitis [Recovering/Resolving]
  - Oedema peripheral [Unknown]
  - Hypercalcaemia [Unknown]
  - Disease progression [Unknown]

NARRATIVE: CASE EVENT DATE: 20211005
